FAERS Safety Report 15795708 (Version 2)
Quarter: 2019Q2

REPORT INFORMATION
  Report Type: Spontaneous
  Country: AU (occurrence: AU)
  Receive Date: 20190107
  Receipt Date: 20190610
  Transmission Date: 20190711
  Serious: Yes (Hospitalization, Other)
  Sender: FDA-Public Use
  Company Number: AU-MYLANLABS-2017M1060037

PATIENT
  Age: 29 Year
  Sex: Female

DRUGS (3)
  1. CLOZARIL [Suspect]
     Active Substance: CLOZAPINE
     Dosage: 400 MG, PM
     Route: 048
     Dates: start: 20170913, end: 201709
  2. CLOZARIL [Suspect]
     Active Substance: CLOZAPINE
     Indication: SCHIZOPHRENIA
     Dosage: 400 MG, AM
     Route: 048
     Dates: start: 19960815, end: 20170909
  3. CLOZARIL [Suspect]
     Active Substance: CLOZAPINE
     Dosage: UNK
     Route: 048
     Dates: end: 20190520

REACTIONS (14)
  - Hospitalisation [Unknown]
  - White blood cell count increased [Recovered/Resolved]
  - Antipsychotic drug level increased [Unknown]
  - Mental impairment [Unknown]
  - Acute psychosis [Unknown]
  - Treatment noncompliance [Unknown]
  - Lymphocytosis [Unknown]
  - Eosinophil count decreased [Unknown]
  - Platelet count decreased [Recovered/Resolved]
  - Anion gap increased [Recovered/Resolved]
  - Blood creatine phosphokinase increased [Recovered/Resolved]
  - Blood lactate dehydrogenase increased [Recovered/Resolved]
  - Cognitive disorder [Unknown]
  - Bundle branch block right [Unknown]

NARRATIVE: CASE EVENT DATE: 20020114
